FAERS Safety Report 5165826-8 (Version None)
Quarter: 2006Q4

REPORT INFORMATION
  Report Type: 
  Country: None (occurrence: None)
  Receive Date: 20061128
  Receipt Date: 20061115
  Transmission Date: 20070319
  Serious: Yes (Hospitalization, Other)
  Sender: FDA-Public Use
  Company Number: 2006142871

PATIENT
  Age: 44 Year
  Sex: Female
  Weight: 56.6996 kg

DRUGS (4)
  1. CHANTIX [Suspect]
     Indication: SMOKING CESSATION THERAPY
     Dates: start: 20061001
  2. ADDERALL (AMFETAMINE ASPARTATE, AMFETAMINE SULFATE, DEXAFETAMINE SACCH [Concomitant]
  3. ATIVAN [Concomitant]
  4. ACIPHEX [Concomitant]

REACTIONS (5)
  - DRUG DEPENDENCE [None]
  - FORMICATION [None]
  - OVARIAN CYST [None]
  - SMALL INTESTINAL OBSTRUCTION [None]
  - STOMACH DISCOMFORT [None]
